FAERS Safety Report 9904896 (Version 1)
Quarter: 2014Q1

REPORT INFORMATION
  Report Type: Spontaneous
  Country: US (occurrence: US)
  Receive Date: 20140218
  Receipt Date: 20140218
  Transmission Date: 20141002
  Serious: Yes (Other)
  Sender: FDA-Public Use
  Company Number: US-PFIZER INC-2014039104

PATIENT
  Age: 55 Year
  Sex: Male
  Weight: 86.2 kg

DRUGS (4)
  1. PREPARATION H HYDROCORTISONE [Suspect]
     Indication: HAEMORRHOIDS
     Dosage: UNK, SINGLE
     Dates: start: 20140207, end: 20140207
  2. PREPARATION H HYDROCORTISONE [Suspect]
     Indication: PRURITUS
  3. CARVEDILOL [Concomitant]
     Dosage: UNK
  4. LOSARTAN [Concomitant]
     Dosage: UNK

REACTIONS (3)
  - Haemorrhage [Not Recovered/Not Resolved]
  - Blood pressure increased [Not Recovered/Not Resolved]
  - Insomnia [Not Recovered/Not Resolved]
